FAERS Safety Report 20955869 (Version 1)
Quarter: 2022Q2

REPORT INFORMATION
  Report Type: Spontaneous
  Country: US (occurrence: None)
  Receive Date: 20220614
  Receipt Date: 20220614
  Transmission Date: 20220721
  Serious: No
  Sender: FDA-Public Use
  Company Number: None

PATIENT
  Age: 47 Year
  Sex: Female
  Weight: 89 kg

DRUGS (1)
  1. ASPIRIN [Suspect]
     Active Substance: ASPIRIN
     Indication: Product used for unknown indication
     Dates: start: 20190102

REACTIONS (5)
  - Intraductal proliferative breast lesion [None]
  - Hormone receptor positive breast cancer [None]
  - Hormone receptor positive breast cancer [None]
  - Invasive ductal breast carcinoma [None]
  - Mastectomy [None]

NARRATIVE: CASE EVENT DATE: 20190102
